FAERS Safety Report 6945413-9 (Version None)
Quarter: 2010Q3

REPORT INFORMATION
  Report Type: 
  Country: None (occurrence: None)
  Receive Date: 20100827
  Receipt Date: 20100823
  Transmission Date: 20110219
  Serious: Yes (Death)
  Sender: FDA-Public Use
  Company Number: PHHY2010RU56024

PATIENT
  Age: 76 Year
  Sex: Male

DRUGS (9)
  1. EXELON [Suspect]
     Indication: CONFUSIONAL STATE
     Dosage: 3 MG
     Route: 048
     Dates: start: 20100407, end: 20100418
  2. EXELON [Suspect]
     Dosage: 4 MG
     Route: 048
     Dates: end: 20100418
  3. CYTOFLAVIN [Concomitant]
     Dosage: 10 ML DROP-BY-DROP
     Route: 042
     Dates: start: 20100407
  4. CEREBROLYSIN [Concomitant]
     Dosage: 10 ML STREAM INTRODUCTION
     Route: 042
     Dates: start: 20100407
  5. PANANGIN [Concomitant]
     Dosage: 10 ML DROP-BY-DROP
     Route: 042
     Dates: start: 20100407
  6. HEPARIN [Concomitant]
     Dosage: 20000 UN DAILY
     Dates: start: 20100407
  7. NIFEDIPINE [Concomitant]
     Dosage: 30 MG DAILY
     Dates: start: 20100407
  8. OMEPRAZOLE [Concomitant]
     Dosage: 20 MG
     Dates: start: 20100407
  9. CEFTRIAXONE [Concomitant]
     Dosage: 3 GM DAILY
     Route: 030
     Dates: start: 20100415

REACTIONS (3)
  - CARDIOPULMONARY FAILURE [None]
  - PNEUMONIA [None]
  - PULMONARY OEDEMA [None]
